FAERS Safety Report 23347202 (Version 1)
Quarter: 2023Q4

REPORT INFORMATION
  Report Type: Spontaneous
  Country: US (occurrence: US)
  Receive Date: 20231228
  Receipt Date: 20231228
  Transmission Date: 20240110
  Serious: Yes (Other)
  Sender: FDA-Public Use
  Company Number: US-BEH-2023166657

PATIENT
  Age: 14 Year
  Sex: Female

DRUGS (4)
  1. HUMAN IMMUNOGLOBULIN G [Suspect]
     Active Substance: HUMAN IMMUNOGLOBULIN G
     Indication: Pemphigus
     Dosage: 15G/D [0.4MG/KG/D]) FOR 5 DAYS
     Route: 042
  2. METHYLPREDNISOLONE [Suspect]
     Active Substance: METHYLPREDNISOLONE
     Dosage: 400 MILLIGRAM
     Route: 042
  3. PREDNISONE [Suspect]
     Active Substance: PREDNISONE
     Dosage: 60 MILLIGRAM
     Route: 048
  4. MYCOPHENOLATE MOFETIL [Suspect]
     Active Substance: MYCOPHENOLATE MOFETIL
     Dosage: 500 MILLIGRAM, QD
     Route: 065

REACTIONS (8)
  - Infection [Unknown]
  - Cushingoid [Unknown]
  - Hypertrichosis [Unknown]
  - Oedema [Unknown]
  - Sepsis [Unknown]
  - Hirsutism [Unknown]
  - No adverse event [Unknown]
  - Off label use [Unknown]
